FAERS Safety Report 10581498 (Version 2)
Quarter: 2015Q1

REPORT INFORMATION
  Report Type: Spontaneous
  Country: RO (occurrence: RO)
  Receive Date: 20141113
  Receipt Date: 20150128
  Transmission Date: 20150720
  Serious: Yes (Other)
  Sender: FDA-Public Use
  Company Number: RO-ELI_LILLY_AND_COMPANY-RO201411004960

PATIENT
  Age: 15 Year
  Sex: Male
  Weight: 42.5 kg

DRUGS (2)
  1. SOMATROPIN [Suspect]
     Active Substance: SOMATROPIN
     Indication: BODY HEIGHT BELOW NORMAL
     Dosage: 1.2 MG, QD
     Route: 058
     Dates: start: 201004, end: 201205
  2. SOMATROPIN [Suspect]
     Active Substance: SOMATROPIN
     Dosage: 1.5 MG, QD
     Route: 058
     Dates: start: 201211

REACTIONS (1)
  - Epiphysiolysis [Unknown]

NARRATIVE: CASE EVENT DATE: 201205
